FAERS Safety Report 6626020-4 (Version None)
Quarter: 2010Q1

REPORT INFORMATION
  Report Type: 
  Country: None (occurrence: None)
  Receive Date: 20100309
  Receipt Date: 20100309
  Transmission Date: 20100710
  Serious: Yes (Disabling)
  Sender: FDA-Public Use
  Company Number: None

PATIENT
  Age: 39 Year
  Sex: Female

DRUGS (3)
  1. LUPRON DEPOT [Suspect]
     Dosage: 1 DOSE 3.75 MG 4/5/6 08; 2ND DOSE 3.75 MG
     Dates: start: 20080416
  2. LUPRON DEPOT [Suspect]
     Dosage: 1 DOSE 3.75 MG 4/5/6 08; 2ND DOSE 3.75 MG
     Dates: start: 20080508
  3. LUPRON DEPOT [Suspect]
     Dosage: 1 DOSE 3.75 MG 4/5/6 08; 2ND DOSE 3.75 MG
     Dates: start: 20080612

REACTIONS (10)
  - AMNESIA [None]
  - BLOOD CHOLESTEROL INCREASED [None]
  - BONE DENSITY DECREASED [None]
  - DEPRESSION [None]
  - FATIGUE [None]
  - GLAUCOMA [None]
  - HEADACHE [None]
  - INTERVERTEBRAL DISC DEGENERATION [None]
  - MENORRHAGIA [None]
  - WEIGHT INCREASED [None]
